FAERS Safety Report 5906649-9 (Version None)
Quarter: 2008Q4

REPORT INFORMATION
  Report Type: 
  Country: None (occurrence: None)
  Receive Date: 20081002
  Receipt Date: 20080929
  Transmission Date: 20090506
  Serious: Yes (Death)
  Sender: FDA-Public Use
  Company Number: PL-AMGEN-UK289386

PATIENT

DRUGS (1)
  1. ARANESP [Suspect]
     Indication: DIALYSIS
     Route: 065

REACTIONS (2)
  - ARTERIOSCLEROSIS [None]
  - MYOCARDIAL INFARCTION [None]
